FAERS Safety Report 6052681-7 (Version None)
Quarter: 2009Q1

REPORT INFORMATION
  Report Type: 
  Country: None (occurrence: None)
  Receive Date: 20090127
  Receipt Date: 20090115
  Transmission Date: 20090719
  Serious: Yes (Hospitalization)
  Sender: FDA-Public Use
  Company Number: IT-PFIZER INC-2008065104

PATIENT

DRUGS (3)
  1. DOCETAXEL [Suspect]
     Indication: BREAST CANCER
     Dosage: 100 MG, 1X/DAY, EVERY 3 WEEKS
     Route: 042
     Dates: start: 20080711, end: 20080801
  2. SUNITINIB MALATE [Suspect]
     Indication: BREAST CANCER
     Dosage: 37.5 MG, 1X/DAY
     Route: 048
     Dates: start: 20080712, end: 20080725
  3. OMEPRAZOLE [Concomitant]
     Dosage: UNK

REACTIONS (2)
  - HYPOTENSION [None]
  - SYNCOPE [None]
